FAERS Safety Report 11813617 (Version 1)
Quarter: 2015Q4

REPORT INFORMATION
  Report Type: Spontaneous
  Country: CA (occurrence: CA)
  Receive Date: 20151209
  Receipt Date: 20151209
  Transmission Date: 20160305
  Serious: Yes (Other)
  Sender: FDA-Public Use
  Company Number: CA-TEVA-613827ACC

PATIENT
  Sex: Male
  Weight: 70.82 kg

DRUGS (7)
  1. IRBESARTAN. [Suspect]
     Active Substance: IRBESARTAN
     Indication: CARDIAC DISORDER
  2. IRBESARTAN. [Suspect]
     Active Substance: IRBESARTAN
     Indication: HYPERTENSION
     Dosage: 300 MILLIGRAM DAILY;
     Route: 048
  3. TYLENOL WITH CODEINE NO.3- TAB [Concomitant]
  4. METOPROLOL APO [Concomitant]
  5. FLONASE - AEM- SUS NAS 50MCG/MD [Concomitant]
     Dosage: METERRD- DOSE (PUMP)
  6. HYDROCHLOROTHIAZIDE. [Concomitant]
     Active Substance: HYDROCHLOROTHIAZIDE
  7. ENTERIC COATED ASA [Concomitant]
     Active Substance: ASPIRIN

REACTIONS (3)
  - Product substitution issue [Recovered/Resolved]
  - Dysphagia [Recovered/Resolved]
  - Pharyngeal oedema [Recovered/Resolved]
